FAERS Safety Report 12339995 (Version 2)
Quarter: 2016Q2

REPORT INFORMATION
  Report Type: Spontaneous
  Country: US (occurrence: US)
  Receive Date: 20160506
  Receipt Date: 20160513
  Transmission Date: 20160815
  Serious: No
  Sender: FDA-Public Use
  Company Number: US-009507513-1604USA014743

PATIENT
  Age: 25 Year
  Sex: Female
  Weight: 148.75 kg

DRUGS (1)
  1. NEXPLANON [Suspect]
     Active Substance: ETONOGESTREL
     Indication: CONTRACEPTION
     Dosage: 68 MG/THREE YEARS
     Route: 059
     Dates: start: 20160411

REACTIONS (2)
  - Device expulsion [Unknown]
  - No adverse event [Unknown]

NARRATIVE: CASE EVENT DATE: 20160415
